FAERS Safety Report 4511818-9 (Version None)
Quarter: 2004Q4

REPORT INFORMATION
  Report Type: 
  Country: None (occurrence: None)
  Receive Date: 20041123
  Receipt Date: 20041119
  Transmission Date: 20050328
  Serious: Yes (Other)
  Sender: FDA-Public Use
  Company Number: 200413964BCC

PATIENT
  Age: 43 Year
  Sex: Female
  Weight: 72.5755 kg

DRUGS (3)
  1. RID MOUSSE [Suspect]
     Indication: LICE INFESTATION
     Dosage: ONCE, TOPICAL
     Route: 061
     Dates: start: 20040731
  2. RID MOUSSE [Suspect]
     Indication: LICE INFESTATION
     Dosage: ONCE, TOPICAL
     Route: 061
     Dates: start: 20040809
  3. RID MOUSSE [Suspect]
     Indication: LICE INFESTATION
     Dosage: PRN

REACTIONS (5)
  - CONTUSION [None]
  - CONVULSION [None]
  - FALL [None]
  - HEAD INJURY [None]
  - LOSS OF CONSCIOUSNESS [None]
